FAERS Safety Report 20422392 (Version 1)
Quarter: 2022Q1

REPORT INFORMATION
  Report Type: Spontaneous
  Country: US (occurrence: None)
  Receive Date: 20220203
  Receipt Date: 20220203
  Transmission Date: 20220423
  Serious: Yes (Other)
  Sender: FDA-Public Use
  Company Number: None

PATIENT
  Age: 4 Year
  Sex: Female
  Weight: 18.1 kg

DRUGS (3)
  1. LEVETIRACETAM [Suspect]
     Active Substance: LEVETIRACETAM
     Indication: Epilepsy
     Dosage: FREQUENCY : TWICE A DAY;?
     Route: 048
     Dates: start: 20210527, end: 20210721
  2. cannabidiol (Epidiolex) [Concomitant]
  3. lacosamide (VIMPAT) [Concomitant]

REACTIONS (3)
  - Seizure [None]
  - Product substitution issue [None]
  - Paralysis [None]

NARRATIVE: CASE EVENT DATE: 20210721
